FAERS Safety Report 20283163 (Version 2)
Quarter: 2022Q1

REPORT INFORMATION
  Report Type: Report from Study
  Country: US (occurrence: US)
  Receive Date: 20220103
  Receipt Date: 20220226
  Transmission Date: 20220423
  Serious: Yes (Hospitalization, Other)
  Sender: FDA-Public Use
  Company Number: US-NOVARTISPH-NVSC2021US300484

PATIENT
  Age: 69 Year
  Sex: Female

DRUGS (1)
  1. COSENTYX [Suspect]
     Active Substance: SECUKINUMAB
     Indication: Psoriatic arthropathy
     Dosage: 300 MG, QMO
     Route: 058
     Dates: start: 202106, end: 20220201

REACTIONS (5)
  - Diverticulitis [Recovering/Resolving]
  - Irritable bowel syndrome [Recovering/Resolving]
  - Panniculitis [Unknown]
  - Urinary tract infection [Unknown]
  - Illness [Unknown]

NARRATIVE: CASE EVENT DATE: 20211101
